FAERS Safety Report 12397727 (Version 1)
Quarter: 2016Q2

REPORT INFORMATION
  Report Type: Spontaneous
  Country: US (occurrence: US)
  Receive Date: 20160524
  Receipt Date: 20160524
  Transmission Date: 20160815
  Serious: No
  Sender: FDA-Public Use
  Company Number: US-TORRENT-00001190

PATIENT
  Sex: Male

DRUGS (1)
  1. ARIPIPRAZOLE TABLET [Suspect]
     Active Substance: ARIPIPRAZOLE
     Indication: PRODUCT USED FOR UNKNOWN INDICATION
     Dosage: 1 TABLET DAILY

REACTIONS (4)
  - Muscular weakness [Unknown]
  - Hypertension [Unknown]
  - Pyrexia [Unknown]
  - Heart rate increased [Unknown]
